FAERS Safety Report 11240660 (Version 2)
Quarter: 2015Q3

REPORT INFORMATION
  Report Type: Spontaneous
  Country: GB (occurrence: GB)
  Receive Date: 20150706
  Receipt Date: 20150727
  Transmission Date: 20151125
  Serious: Yes (Hospitalization)
  Sender: FDA-Public Use
  Company Number: GB-PFIZER INC-2015217567

PATIENT
  Age: 83 Year
  Sex: Female

DRUGS (18)
  1. FLUCONAZOLE. [Suspect]
     Active Substance: FLUCONAZOLE
     Indication: CANDIDURIA
     Dosage: 150 MG, STAT DOSE
     Route: 048
     Dates: start: 20150606, end: 20150606
  2. WARFARIN [Interacting]
     Active Substance: WARFARIN
  3. BISOPROLOL [Concomitant]
     Active Substance: BISOPROLOL
  4. DIGOXIN. [Concomitant]
     Active Substance: DIGOXIN
  5. GENTAMICIN. [Concomitant]
     Active Substance: GENTAMICIN
  6. NEFOPAM [Concomitant]
     Active Substance: NEFOPAM
  7. OXYCONTIN [Concomitant]
     Active Substance: OXYCODONE HYDROCHLORIDE
     Dosage: UNK
  8. LACTULOSE. [Concomitant]
     Active Substance: LACTULOSE
  9. SANDO K [Concomitant]
  10. SENNA [Concomitant]
     Active Substance: SENNA LEAF\SENNOSIDES\SENNOSIDES A AND B
  11. PARACETAMOL [Concomitant]
     Active Substance: ACETAMINOPHEN
  12. VITAMIN K [Concomitant]
     Active Substance: PHYTONADIONE
  13. CITALOPRAM [Concomitant]
     Active Substance: CITALOPRAM HYDROBROMIDE
  14. SIMVASTATIN. [Concomitant]
     Active Substance: SIMVASTATIN
  15. COLECALCIFEROL [Concomitant]
     Active Substance: CHOLECALCIFEROL
  16. TAZOCIN [Concomitant]
     Active Substance: PIPERACILLIN SODIUM\TAZOBACTAM SODIUM
     Dosage: UNK
     Dates: end: 20150602
  17. TRIMETHOPRIM. [Concomitant]
     Active Substance: TRIMETHOPRIM
     Dosage: UNK
     Dates: end: 20150522
  18. TINZAPARIN [Concomitant]
     Active Substance: TINZAPARIN
     Dosage: UNK

REACTIONS (3)
  - International normalised ratio abnormal [Recovered/Resolved]
  - Inhibitory drug interaction [Unknown]
  - Ischaemic stroke [Unknown]

NARRATIVE: CASE EVENT DATE: 20150608
